FAERS Safety Report 17532626 (Version 1)
Quarter: 2020Q1

REPORT INFORMATION
  Report Type: Spontaneous
  Country: US (occurrence: US)
  Receive Date: 20200312
  Receipt Date: 20200312
  Transmission Date: 20200409
  Serious: No
  Sender: FDA-Public Use
  Company Number: US-CELGENEUS-USA-20200300601

PATIENT
  Sex: Female
  Weight: 113 kg

DRUGS (2)
  1. APREMILAST [Suspect]
     Active Substance: APREMILAST
     Indication: HIDRADENITIS
     Dosage: 30 MILLIGRAM
     Route: 048
     Dates: start: 202001
  2. APREMILAST [Suspect]
     Active Substance: APREMILAST
     Indication: OFF LABEL USE
     Dosage: 30 MILLIGRAM
     Route: 048
     Dates: start: 2020

REACTIONS (1)
  - Condition aggravated [Unknown]
